FAERS Safety Report 16112867 (Version 3)
Quarter: 2019Q2

REPORT INFORMATION
  Report Type: Spontaneous
  Country: CH (occurrence: CH)
  Receive Date: 20190325
  Receipt Date: 20190606
  Transmission Date: 20190711
  Serious: Yes (Other)
  Sender: FDA-Public Use
  Company Number: CH-ASTRAZENECA-2019SE45016

PATIENT
  Sex: Male
  Weight: 92 kg

DRUGS (12)
  1. METFORMIN [Concomitant]
     Active Substance: METFORMIN HYDROCHLORIDE
     Indication: DIABETES MELLITUS
  2. FASENRA [Suspect]
     Active Substance: BENRALIZUMAB
     Indication: BRONCHOPULMONARY ASPERGILLOSIS ALLERGIC
     Route: 058
     Dates: start: 201812
  3. MAGNESIOCARD [Concomitant]
     Active Substance: MAGNESIUM ASPARTATE HYDROCHLORIDE
  4. PANTOPRAZOLE [Concomitant]
     Active Substance: PANTOPRAZOLE
  5. SPIRICORT [Concomitant]
     Active Substance: PREDNISOLONE
  6. FASENRA [Suspect]
     Active Substance: BENRALIZUMAB
     Indication: ASTHMA-CHRONIC OBSTRUCTIVE PULMONARY DISEASE OVERLAP SYNDROME
     Route: 058
     Dates: start: 201812
  7. IPRAMOL SOLUTION [Concomitant]
  8. VALSARTAN. [Concomitant]
     Active Substance: VALSARTAN
  9. TORASEMIDE [Concomitant]
     Active Substance: TORSEMIDE
  10. VICTOZA [Concomitant]
     Active Substance: LIRAGLUTIDE
  11. KCL REATRAD [Concomitant]
  12. LORATADINE. [Concomitant]
     Active Substance: LORATADINE

REACTIONS (2)
  - Vitamin B12 deficiency [Unknown]
  - Polyneuropathy [Unknown]
